FAERS Safety Report 7700603-2 (Version None)
Quarter: 2011Q3

REPORT INFORMATION
  Report Type: 
  Country: None (occurrence: None)
  Receive Date: 20110817
  Receipt Date: 20110805
  Transmission Date: 20111222
  Serious: Yes (Hospitalization)
  Sender: FDA-Public Use
  Company Number: 2010-2399

PATIENT
  Age: 11 Year
  Sex: Male
  Weight: 27.5 kg

DRUGS (9)
  1. INCRELEX [Suspect]
     Indication: INSULIN-LIKE GROWTH FACTOR INCREASED
     Dosage: 0.16 MG/KG (0.08 MG/KG,2 IN 1 D),SUBCUTANEOUS
     Route: 058
     Dates: start: 20081209
  2. BECONASE [Concomitant]
  3. ANTIDEPRESSANTS (ANTIDEPRESSANTS) [Concomitant]
  4. UVESTEROL (UVESTEROL) [Concomitant]
  5. CREON [Concomitant]
  6. URSODIOL [Concomitant]
  7. VENTOLIN [Concomitant]
  8. ANTIBIOTICS (ANTIBIOTICS) [Concomitant]
  9. OMEPRAZOLE [Concomitant]

REACTIONS (2)
  - INSULIN-LIKE GROWTH FACTOR DECREASED [None]
  - HYDROCELE [None]
